FAERS Safety Report 11672016 (Version 1)
Quarter: 2015Q4

REPORT INFORMATION
  Report Type: Spontaneous
  Country: US (occurrence: US)
  Receive Date: 20151028
  Receipt Date: 20151028
  Transmission Date: 20160304
  Serious: No
  Sender: FDA-Public Use
  Company Number: PHEH2015US008649

PATIENT
  Sex: Female

DRUGS (2)
  1. CELLCEPT [Suspect]
     Active Substance: MYCOPHENOLATE MOFETIL\MYCOPHENOLATE MOFETIL HYDROCHLORIDE
     Indication: PRODUCT USED FOR UNKNOWN INDICATION
     Route: 065
  2. MYFORTIC [Suspect]
     Active Substance: MYCOPHENOLATE SODIUM
     Indication: CONGENITAL SYPHILITIC OSTEOCHONDRITIS
     Dosage: 360 MG, BID
     Route: 065
     Dates: start: 20150430

REACTIONS (5)
  - Dehydration [Unknown]
  - Pollakiuria [Unknown]
  - Oedema peripheral [Unknown]
  - Diarrhoea [Unknown]
  - Lung infection [Unknown]
